FAERS Safety Report 20706396 (Version 1)
Quarter: 2022Q2

REPORT INFORMATION
  Report Type: Spontaneous
  Country: GB (occurrence: GB)
  Receive Date: 20220413
  Receipt Date: 20220413
  Transmission Date: 20220721
  Serious: Yes (Hospitalization, Other)
  Sender: FDA-Public Use
  Company Number: GB-AZURITY PHARMACEUTICALS, INC.-GB-2022ARB000931

PATIENT
  Age: 30 Year
  Sex: Female

DRUGS (1)
  1. METHOTREXATE [Suspect]
     Active Substance: METHOTREXATE
     Indication: Ectopic pregnancy
     Dosage: 75 MG DOSE DILUTED INTO 5 ML OF NORMAL SALINE INJECTION

REACTIONS (5)
  - Toxicity to various agents [Recovered/Resolved]
  - Mucosal inflammation [Recovered/Resolved]
  - Rash papular [Recovered/Resolved]
  - Pancytopenia [Recovered/Resolved]
  - Exposure during pregnancy [Unknown]
